FAERS Safety Report 7000502-8 (Version None)
Quarter: 2010Q3

REPORT INFORMATION
  Report Type: 
  Country: None (occurrence: None)
  Receive Date: 20100920
  Receipt Date: 20100512
  Transmission Date: 20110219
  Serious: No
  Sender: FDA-Public Use
  Company Number: US-ASTRAZENECA-2008UW24330

PATIENT
  Age: 12956 Day
  Sex: Female
  Weight: 54.4 kg

DRUGS (38)
  1. SEROQUEL [Suspect]
     Indication: POST-TRAUMATIC STRESS DISORDER
     Route: 048
     Dates: start: 20031001
  2. SEROQUEL [Suspect]
     Indication: PANIC DISORDER
     Route: 048
     Dates: start: 20031001
  3. SEROQUEL [Suspect]
     Indication: AGORAPHOBIA
     Route: 048
     Dates: start: 20031001
  4. SEROQUEL [Suspect]
     Indication: MAJOR DEPRESSION
     Route: 048
     Dates: start: 20031001
  5. SEROQUEL [Suspect]
     Indication: PSYCHOTIC DISORDER
     Route: 048
     Dates: start: 20031001
  6. SEROQUEL [Suspect]
     Route: 048
     Dates: start: 20031111
  7. SEROQUEL [Suspect]
     Route: 048
     Dates: start: 20031111
  8. SEROQUEL [Suspect]
     Route: 048
     Dates: start: 20031111
  9. SEROQUEL [Suspect]
     Route: 048
     Dates: start: 20031111
  10. SEROQUEL [Suspect]
     Route: 048
     Dates: start: 20031111
  11. SEROQUEL [Suspect]
     Route: 048
     Dates: start: 20040113
  12. SEROQUEL [Suspect]
     Route: 048
     Dates: start: 20040113
  13. SEROQUEL [Suspect]
     Route: 048
     Dates: start: 20040113
  14. SEROQUEL [Suspect]
     Route: 048
     Dates: start: 20040113
  15. SEROQUEL [Suspect]
     Route: 048
     Dates: start: 20040113
  16. SEROQUEL [Suspect]
     Route: 048
     Dates: start: 20040311, end: 20050510
  17. SEROQUEL [Suspect]
     Route: 048
     Dates: start: 20040311, end: 20050510
  18. SEROQUEL [Suspect]
     Route: 048
     Dates: start: 20040311, end: 20050510
  19. SEROQUEL [Suspect]
     Route: 048
     Dates: start: 20040311, end: 20050510
  20. SEROQUEL [Suspect]
     Route: 048
     Dates: start: 20040311, end: 20050510
  21. SEROQUEL [Suspect]
     Route: 048
     Dates: start: 20041201
  22. SEROQUEL [Suspect]
     Route: 048
     Dates: start: 20041201
  23. SEROQUEL [Suspect]
     Route: 048
     Dates: start: 20041201
  24. SEROQUEL [Suspect]
     Route: 048
     Dates: start: 20041201
  25. SEROQUEL [Suspect]
     Route: 048
     Dates: start: 20041201
  26. ABILIFY [Concomitant]
     Dates: start: 20050501, end: 20060301
  27. KLONOPIN [Concomitant]
     Dosage: 0.5 TO 1 MG QAM OR QHS
     Dates: start: 20030601, end: 20070101
  28. WELLBUTRIN XL [Concomitant]
     Dates: start: 20050301, end: 20060101
  29. LEXAPRO [Concomitant]
     Dates: start: 20060101
  30. ZOLOFT [Concomitant]
     Dosage: 50 - 100 MG PO QD
     Dates: start: 20021025
  31. ZOLOFT [Concomitant]
     Dosage: 100 MG 2 TAB PO QAM
     Dates: start: 20031111
  32. CLOZARIL [Concomitant]
  33. XANAX [Concomitant]
     Dosage: 5 MG PO QHS
     Dates: start: 20021025
  34. AMITRIPTYLINE [Concomitant]
     Dosage: 12.5-25MG
     Route: 048
     Dates: start: 20060929
  35. NAPROXIN [Concomitant]
     Route: 048
     Dates: start: 20060929
  36. ACCUPRIL [Concomitant]
     Dates: start: 20050714
  37. CARDIZEM LA [Concomitant]
     Dates: start: 20050714
  38. COREG [Concomitant]
     Dates: start: 20050714

REACTIONS (4)
  - DIABETES MELLITUS [None]
  - OPEN ANGLE GLAUCOMA [None]
  - TYPE 2 DIABETES MELLITUS [None]
  - VISUAL ACUITY REDUCED [None]
